FAERS Safety Report 16291735 (Version 2)
Quarter: 2020Q1

REPORT INFORMATION
  Report Type: Spontaneous
  Country: US (occurrence: US)
  Receive Date: 20190509
  Receipt Date: 20200131
  Transmission Date: 20200409
  Serious: Yes (Other)
  Sender: FDA-Public Use
  Company Number: US-CATALYST PHARMACEUTICALS, INC-2019CAT00128

PATIENT
  Age: 53 Year
  Sex: Female
  Weight: 63.95 kg

DRUGS (14)
  1. FIRDAPSE [Suspect]
     Active Substance: AMIFAMPRIDINE
     Indication: MYASTHENIC SYNDROME
     Dosage: 5 MG, 3X/DAY
     Route: 048
     Dates: start: 20190425, end: 20190426
  2. RANITIDINE. [Concomitant]
     Active Substance: RANITIDINE
  3. CALTRATE CALCIUM + D3 [Concomitant]
  4. VITAMIN D3 [Concomitant]
     Active Substance: CHOLECALCIFEROL
  5. ADVIL [Concomitant]
     Active Substance: IBUPROFEN
     Dosage: OCCASIONALLY
  6. ALPRAZOLAM. [Concomitant]
     Active Substance: ALPRAZOLAM
  7. HYDROCODONE [Concomitant]
     Active Substance: HYDROCODONE
  8. TRAZODONE [Concomitant]
     Active Substance: TRAZODONE HYDROCHLORIDE
     Dosage: 100 MG
  9. MESTINON [Concomitant]
     Active Substance: PYRIDOSTIGMINE BROMIDE
     Dosage: 75 MG, 5X/DAY
  10. VOLTAREN [Concomitant]
     Active Substance: DICLOFENAC SODIUM
     Dosage: OCCASIONALLY
  11. FIRDAPSE [Suspect]
     Active Substance: AMIFAMPRIDINE
     Dosage: 2.5 MG, 3X/DAY
     Route: 048
     Dates: start: 20190426, end: 20190427
  12. CENTRUM (MULTIVITAMIN) [Concomitant]
  13. VITAMIN B12 [Concomitant]
     Active Substance: CYANOCOBALAMIN
  14. MELOXICAM. [Concomitant]
     Active Substance: MELOXICAM
     Dosage: 15 MG OCCASIONALLY

REACTIONS (43)
  - Hypopnoea [Unknown]
  - Head injury [Unknown]
  - Jaw disorder [Unknown]
  - Piloerection [Unknown]
  - Eyelid ptosis [Unknown]
  - Chills [Unknown]
  - Malaise [Unknown]
  - Headache [Unknown]
  - Asthenia [Unknown]
  - Musculoskeletal pain [Unknown]
  - Confusional state [Unknown]
  - Fine motor skill dysfunction [Unknown]
  - Paraesthesia oral [Unknown]
  - Gait disturbance [Unknown]
  - Aptyalism [Unknown]
  - Sleep disorder [Unknown]
  - Paraesthesia [Unknown]
  - Speech disorder [Unknown]
  - Performance status decreased [Unknown]
  - Feeling cold [Unknown]
  - Dysarthria [Unknown]
  - Feeling abnormal [Unknown]
  - Pharyngeal paraesthesia [Unknown]
  - Chest discomfort [Unknown]
  - Dizziness [Unknown]
  - Dyspnoea [Unknown]
  - Hypokinesia [Unknown]
  - Hot flush [Unknown]
  - Cold sweat [Unknown]
  - Dry mouth [Unknown]
  - Decreased appetite [Unknown]
  - Therapeutic response delayed [Recovered/Resolved]
  - Speech disorder [Unknown]
  - Hypoaesthesia [Unknown]
  - Dysphagia [Unknown]
  - Feeling hot [Unknown]
  - Hypersensitivity [Recovered/Resolved]
  - Drug ineffective [Recovered/Resolved]
  - Hyperhidrosis [Unknown]
  - Oral discomfort [Unknown]
  - Diplopia [Unknown]
  - Dry eye [Unknown]
  - Muscle contractions involuntary [Unknown]

NARRATIVE: CASE EVENT DATE: 201904
